FAERS Safety Report 4599667-7 (Version None)
Quarter: 2005Q1

REPORT INFORMATION
  Report Type: 
  Country: None (occurrence: None)
  Receive Date: 20050304
  Receipt Date: 20050304
  Transmission Date: 20050727
  Serious: Yes (Hospitalization)
  Sender: FDA-Public Use
  Company Number: None

PATIENT
  Age: 61 Year
  Sex: Female

DRUGS (2)
  1. HEPARIN [Suspect]
  2. WARFARIN [Suspect]

REACTIONS (5)
  - ACTIVATED PARTIAL THROMBOPLASTIN TIME PROLONGED [None]
  - FALL [None]
  - INTERNATIONAL NORMALISED RATIO INCREASED [None]
  - RETROPERITONEAL HAEMORRHAGE [None]
  - SUBDURAL HAEMATOMA [None]
